FAERS Safety Report 15151311 (Version 2)
Quarter: 2018Q3

REPORT INFORMATION
  Report Type: Report from Study
  Country: MX (occurrence: MX)
  Receive Date: 20180716
  Receipt Date: 20180725
  Transmission Date: 20181010
  Serious: Yes (Hospitalization)
  Sender: FDA-Public Use
  Company Number: PHHY2018MX040387

PATIENT
  Sex: Female
  Weight: 44 kg

DRUGS (3)
  1. REVOLADE [Suspect]
     Active Substance: ELTROMBOPAG
     Indication: HODGKIN^S DISEASE
  2. REVOLADE [Suspect]
     Active Substance: ELTROMBOPAG
     Indication: IMMUNE THROMBOCYTOPENIC PURPURA
     Dosage: 2 DF, Q12H (1 IN THE MORNING AND ANOTHER IN THE NIGHT)
     Route: 048
  3. REVOLADE [Suspect]
     Active Substance: ELTROMBOPAG
     Indication: DECREASED IMMUNE RESPONSIVENESS
     Dosage: 2 DF, Q12H
     Route: 048

REACTIONS (5)
  - Haemoglobin decreased [Unknown]
  - Product use in unapproved indication [Unknown]
  - Platelet count decreased [Unknown]
  - Decreased immune responsiveness [Unknown]
  - Incorrect dose administered [Unknown]
